FAERS Safety Report 9690277 (Version 1)
Quarter: 2013Q4

REPORT INFORMATION
  Report Type: Spontaneous
  Country: DE (occurrence: DE)
  Receive Date: 20131115
  Receipt Date: 20131115
  Transmission Date: 20140711
  Serious: Yes (Hospitalization)
  Sender: FDA-Public Use
  Company Number: DE-UCBSA-103069

PATIENT
  Age: 78 Year
  Sex: Female

DRUGS (7)
  1. KEPPRA [Suspect]
     Dosage: MORNING AND EVENING
     Dates: start: 201206, end: 201306
  2. KEPPRA [Suspect]
     Dosage: REDUCED DOSE
     Dates: start: 2013, end: 201309
  3. UNACID [Concomitant]
     Dates: start: 201302
  4. BISOPROLOL [Concomitant]
     Dosage: 1-0-0
     Dates: start: 2012
  5. LEVODOPA/ CARBIDOPA [Concomitant]
     Dosage: 100/25 MG, 1-1-1
     Dates: start: 2012
  6. FOLIC ACID [Concomitant]
     Dosage: DOSE: 5 MG
     Dates: start: 201303
  7. SODIUM CHLORIDE [Concomitant]
     Dosage: 3-3-3
     Dates: start: 2013

REACTIONS (2)
  - Back pain [Recovered/Resolved]
  - Stress [Recovered/Resolved]
